FAERS Safety Report 12242176 (Version 1)
Quarter: 2016Q2

REPORT INFORMATION
  Report Type: Spontaneous
  Country: US (occurrence: None)
  Receive Date: 20160405
  Receipt Date: 20160405
  Transmission Date: 20160815
  Serious: Yes (Disabling, Other)
  Sender: FDA-Public Use
  Company Number: None

PATIENT
  Age: 81 Year
  Sex: Female
  Weight: 83.92 kg

DRUGS (8)
  1. AZOPT [Concomitant]
     Active Substance: BRINZOLAMIDE
  2. ADVIL [Concomitant]
     Active Substance: IBUPROFEN
  3. LUMIGAN [Concomitant]
     Active Substance: BIMATOPROST
  4. NIFEDIPINE ER [Concomitant]
     Active Substance: NIFEDIPINE
  5. NEXAVAR [Suspect]
     Active Substance: SORAFENIB
     Indication: THYROID CANCER RECURRENT
     Route: 048
     Dates: start: 20150209, end: 20160315
  6. UNITHROID [Concomitant]
     Active Substance: LEVOTHYROXINE SODIUM
  7. ALBUTEROL SULFATE HFA [Concomitant]
  8. VALSARTAN-HYDROCHLOROTHIAZIDE [Concomitant]
     Active Substance: HYDROCHLOROTHIAZIDE\VALSARTAN

REACTIONS (3)
  - Visual acuity reduced [None]
  - Retinal vein occlusion [None]
  - Photopsia [None]

NARRATIVE: CASE EVENT DATE: 20160315
